FAERS Safety Report 5263119-1 (Version None)
Quarter: 2007Q1

REPORT INFORMATION
  Report Type: 
  Country: None (occurrence: None)
  Receive Date: 20070312
  Receipt Date: 20070306
  Transmission Date: 20070707
  Serious: Yes (Disabling)
  Sender: FDA-Public Use
  Company Number: US-MERCK-0703USA00812

PATIENT
  Age: 80 Year
  Sex: Male

DRUGS (5)
  1. TIMOPTIC-XE [Suspect]
     Indication: INTRAOCULAR PRESSURE INCREASED
     Route: 047
     Dates: start: 20020101
  2. SYNTHROID [Concomitant]
     Route: 065
  3. FOSAMAX [Concomitant]
     Route: 048
  4. VASOTEC [Concomitant]
     Route: 048
  5. LIPITOR [Concomitant]
     Route: 065

REACTIONS (2)
  - BLINDNESS [None]
  - EYE IRRITATION [None]
